FAERS Safety Report 22174639 (Version 1)
Quarter: 2023Q2

REPORT INFORMATION
  Report Type: Report from Study
  Country: US (occurrence: US)
  Receive Date: 20230405
  Receipt Date: 20230405
  Transmission Date: 20230722
  Serious: Yes (Life-Threatening, Hospitalization)
  Sender: FDA-Public Use
  Company Number: US-ORPHANEU-2023001862

PATIENT

DRUGS (2)
  1. CARBAGLU [Suspect]
     Active Substance: CARGLUMIC ACID
     Indication: Hyperglycinaemia
     Dosage: 800 MILLIGRAM, BID
     Route: 048
     Dates: start: 20220903, end: 202303
  2. CARBAGLU [Suspect]
     Active Substance: CARGLUMIC ACID
     Dosage: 400 MILLIGRAM, BID
     Route: 048
     Dates: start: 202303

REACTIONS (2)
  - Gastrointestinal disorder [Recovered/Resolved]
  - Drug intolerance [Recovered/Resolved]
